FAERS Safety Report 18963739 (Version 1)
Quarter: 2021Q1

REPORT INFORMATION
  Report Type: Spontaneous
  Country: US (occurrence: US)
  Receive Date: 20210303
  Receipt Date: 20210303
  Transmission Date: 20210420
  Serious: No
  Sender: FDA-Public Use
  Company Number: US-SA-2021SA067105

PATIENT
  Sex: Female

DRUGS (1)
  1. DUPIXENT [Suspect]
     Active Substance: DUPILUMAB
     Indication: NASAL POLYPS

REACTIONS (5)
  - Pruritus [Recovered/Resolved]
  - Pustule [Recovered/Resolved]
  - Pain [Recovered/Resolved]
  - Discharge [Recovered/Resolved]
  - Sensitive skin [Recovered/Resolved]
